FAERS Safety Report 5984796-3 (Version None)
Quarter: 2008Q4

REPORT INFORMATION
  Report Type: 
  Country: None (occurrence: None)
  Receive Date: 20081202
  Receipt Date: 20081120
  Transmission Date: 20090506
  Serious: Yes (Death, Life-Threatening, Hospitalization, Other)
  Sender: FDA-Public Use
  Company Number: GXKR2008DE11098

PATIENT
  Age: 18 Year
  Sex: Female

DRUGS (3)
  1. PREDNISOLONE [Suspect]
     Indication: NON-HODGKIN'S LYMPHOMA STAGE IV
     Dosage: 100 MG, DAYS 1-7, ORAL
     Route: 048
  2. VINCRISTINE [Suspect]
     Indication: NON-HODGKIN'S LYMPHOMA STAGE IV
     Dosage: 2 MG, DAY 1, INTRAVENOUS
     Route: 042
  3. CHEMOTHERAPEUTICS NOS (NO INGREDIENTS/SUBSTANCES) [Suspect]
     Indication: NON-HODGKIN'S LYMPHOMA STAGE IV

REACTIONS (20)
  - ANAEMIA [None]
  - BLISTER [None]
  - CLOSTRIDIUM DIFFICILE COLITIS [None]
  - DISEASE PROGRESSION [None]
  - DRUG HYPERSENSITIVITY [None]
  - ENTEROCOCCAL INFECTION [None]
  - EPIDERMAL NECROSIS [None]
  - HYPOTENSION [None]
  - IMMUNOSUPPRESSION [None]
  - INFECTION [None]
  - LIVER DISORDER [None]
  - MUCOSAL INFLAMMATION [None]
  - NEUTROPENIA [None]
  - PYREXIA [None]
  - RASH ERYTHEMATOUS [None]
  - SEPTIC SHOCK [None]
  - STAPHYLOCOCCAL SCALDED SKIN SYNDROME [None]
  - TACHYCARDIA [None]
  - THROMBOCYTOPENIA [None]
  - WOUND SECRETION [None]
